FAERS Safety Report 15606255 (Version 1)
Quarter: 2018Q4

REPORT INFORMATION
  Report Type: Report from Study
  Country: None (occurrence: FR)
  Receive Date: 20181112
  Receipt Date: 20181112
  Transmission Date: 20190205
  Serious: Yes (Other)
  Sender: FDA-Public Use
  Company Number: FR-ABBVIE-18S-056-2549021-00

PATIENT
  Age: 69 Year
  Sex: Female

DRUGS (1)
  1. DUODOPA [Suspect]
     Active Substance: CARBIDOPA\LEVODOPA
     Indication: PARKINSON^S DISEASE
     Route: 050
     Dates: start: 20140805

REACTIONS (4)
  - Urinary tract inflammation [Not Recovered/Not Resolved]
  - Haemorrhage urinary tract [Not Recovered/Not Resolved]
  - Pathogen resistance [Not Recovered/Not Resolved]
  - Bacterial test positive [Not Recovered/Not Resolved]
